FAERS Safety Report 6397331-5 (Version None)
Quarter: 2009Q4

REPORT INFORMATION
  Report Type: 
  Country: None (occurrence: None)
  Receive Date: 20091012
  Receipt Date: 20091001
  Transmission Date: 20100525
  Serious: Yes (Other)
  Sender: FDA-Public Use
  Company Number: US-SANOFI-SYNTHELABO-A03200903352

PATIENT
  Sex: Female

DRUGS (6)
  1. FEMARA [Concomitant]
     Indication: BREAST CANCER
     Dosage: UNK
     Route: 065
  2. ASPIRIN [Concomitant]
     Indication: DRUG USE FOR UNKNOWN INDICATION
     Route: 065
  3. LIPITOR [Concomitant]
     Indication: BLOOD CHOLESTEROL INCREASED
     Route: 065
  4. PLAVIX [Concomitant]
     Indication: BLOOD CHOLESTEROL INCREASED
     Route: 065
  5. ATENOLOL [Concomitant]
     Indication: HYPERTENSION
     Route: 065
  6. AMBIEN CR [Suspect]
     Indication: INSOMNIA
     Route: 048
     Dates: start: 20080301, end: 20090202

REACTIONS (4)
  - AMNESIA [None]
  - IMPAIRED DRIVING ABILITY [None]
  - SLEEP TALKING [None]
  - SOMNAMBULISM [None]
